FAERS Safety Report 9626521 (Version 1)
Quarter: 2013Q4

REPORT INFORMATION
  Report Type: Spontaneous
  Country: US (occurrence: US)
  Receive Date: 20131016
  Receipt Date: 20131016
  Transmission Date: 20140711
  Serious: Yes (Hospitalization)
  Sender: FDA-Public Use
  Company Number: US-ASTRAZENECA-2013SE74520

PATIENT
  Age: 70 Year
  Sex: Male
  Weight: 83.9 kg

DRUGS (19)
  1. METOPROLOL [Suspect]
     Indication: CARDIAC DISORDER
     Route: 048
  2. CRESTOR [Suspect]
     Indication: BLOOD CHOLESTEROL
     Route: 048
  3. PLAVIX [Concomitant]
     Indication: BLOOD TEST ABNORMAL
     Dosage: 75MG MON WEDS FRI DAILY
  4. ZETIA [Concomitant]
  5. FOLIC ACID [Concomitant]
     Indication: SUPPLEMENTATION THERAPY
  6. SPIRIVA [Concomitant]
     Indication: CHRONIC OBSTRUCTIVE PULMONARY DISEASE
     Dosage: 1 CAPSULE DAILY
  7. CITALIPRAM [Concomitant]
     Indication: DEPRESSION
  8. BUSPIRONE [Concomitant]
     Indication: DEPRESSION
  9. LEVOTHYROXIN [Concomitant]
     Indication: THYROID FUNCTION TEST ABNORMAL
     Dosage: 50MCG DAILY
  10. MIRTAZAPINE [Concomitant]
     Indication: DEPRESSION
  11. MIRTAZAPINE [Concomitant]
     Indication: SLEEP DISORDER
  12. MIRTAZAPINE [Concomitant]
     Indication: EATING DISORDER
  13. TAMULOSIN [Concomitant]
     Indication: URINARY TRACT DISORDER
  14. ADDERALL [Concomitant]
     Indication: ATTENTION DEFICIT/HYPERACTIVITY DISORDER
  15. ASPRIN [Concomitant]
  16. VITAMIN D [Concomitant]
     Indication: SUPPLEMENTATION THERAPY
  17. NITROTABS [Concomitant]
     Indication: CHEST PAIN
  18. LIBRIUM [Concomitant]
     Dosage: 10MG 2 A DAY PRN
  19. ENDOCET [Concomitant]
     Indication: PAIN

REACTIONS (11)
  - Fall [Not Recovered/Not Resolved]
  - Acetabulum fracture [Not Recovered/Not Resolved]
  - Attention deficit/hyperactivity disorder [Not Recovered/Not Resolved]
  - Insomnia [Not Recovered/Not Resolved]
  - Blood cholesterol increased [Not Recovered/Not Resolved]
  - Back pain [Not Recovered/Not Resolved]
  - Urinary retention [Not Recovered/Not Resolved]
  - Chronic obstructive pulmonary disease [Not Recovered/Not Resolved]
  - Eating disorder [Not Recovered/Not Resolved]
  - Blood triglycerides increased [Not Recovered/Not Resolved]
  - Drug dose omission [Not Recovered/Not Resolved]
